FAERS Safety Report 12045424 (Version 1)
Quarter: 2016Q1

REPORT INFORMATION
  Report Type: Spontaneous
  Country: ZA (occurrence: ZA)
  Receive Date: 20160208
  Receipt Date: 20160208
  Transmission Date: 20160526
  Serious: Yes (Other)
  Sender: FDA-Public Use
  Company Number: ZA-BAYER-2016-016345

PATIENT
  Sex: Female

DRUGS (1)
  1. YAZ [Suspect]
     Active Substance: DROSPIRENONE\ETHINYL ESTRADIOL
     Indication: MIGRAINE
     Dosage: UNK
     Route: 048

REACTIONS (6)
  - Embolism venous [None]
  - Intentional product misuse [None]
  - Therapeutic response unexpected [None]
  - Product use issue [None]
  - Hysterectomy [None]
  - Uterine haemorrhage [None]
